FAERS Safety Report 16634829 (Version 2)
Quarter: 2019Q3

REPORT INFORMATION
  Report Type: Spontaneous
  Country: IN (occurrence: IN)
  Receive Date: 20190726
  Receipt Date: 20190803
  Transmission Date: 20191004
  Serious: Yes (Death, Life-Threatening, Other)
  Sender: FDA-Public Use
  Company Number: IN-DRREDDYS-USA/IND/19/0112416

PATIENT
  Age: 55 Year
  Sex: Male

DRUGS (1)
  1. CLOPIDOGREL BISULFATE. [Suspect]
     Active Substance: CLOPIDOGREL BISULFATE
     Indication: ANTIPLATELET THERAPY
     Route: 065

REACTIONS (6)
  - Melaena [Fatal]
  - Loss of consciousness [Fatal]
  - Haemoglobin decreased [Fatal]
  - Hypotension [Fatal]
  - Haematochezia [Fatal]
  - Aortoenteric fistula [Fatal]
